FAERS Safety Report 25034743 (Version 1)
Quarter: 2025Q1

REPORT INFORMATION
  Report Type: Report from Study
  Country: CA (occurrence: CA)
  Receive Date: 20250304
  Receipt Date: 20250304
  Transmission Date: 20250409
  Serious: Yes (Hospitalization)
  Sender: Alvotech
  Company Number: CA-JAMP PHARMA CORPORATION-2025-JAM-CA-00294

PATIENT
  Sex: Male

DRUGS (2)
  1. SIMLANDI [Suspect]
     Active Substance: ADALIMUMAB-RYVK
     Indication: Rheumatoid arthritis
     Route: 065
     Dates: start: 20241130
  2. SIMLANDI [Suspect]
     Active Substance: ADALIMUMAB-RYVK
     Indication: Rheumatoid arthritis
     Route: 065
     Dates: start: 20240811, end: 20241022

REACTIONS (10)
  - Human anaplasmosis [Unknown]
  - Arthropod bite [Unknown]
  - Head injury [Unknown]
  - Hypokinesia [Unknown]
  - Confusional state [Unknown]
  - Nervous system disorder [Unknown]
  - Influenza like illness [Unknown]
  - Platelet count decreased [Unknown]
  - Fall [Unknown]
  - Condition aggravated [Unknown]
